FAERS Safety Report 15640955 (Version 2)
Quarter: 2018Q4

REPORT INFORMATION
  Report Type: Report from Study
  Country: CO (occurrence: CO)
  Receive Date: 20181120
  Receipt Date: 20181121
  Transmission Date: 20190205
  Serious: Yes (Other)
  Sender: FDA-Public Use
  Company Number: CO-REGENERON PHARMACEUTICALS, INC.-2018-45325

PATIENT

DRUGS (2)
  1. EYLEA [Suspect]
     Active Substance: AFLIBERCEPT
     Dosage: LAST DOSE. 4 APPLICATIONS IN LEFT EYE.
     Dates: start: 20180507, end: 20180507
  2. EYLEA [Suspect]
     Active Substance: AFLIBERCEPT
     Indication: DIABETIC RETINAL OEDEMA
     Dosage: 2 MG, UNK
     Route: 031
     Dates: start: 20170614

REACTIONS (4)
  - Visual impairment [Not Recovered/Not Resolved]
  - Product availability issue [Unknown]
  - Blindness unilateral [Not Recovered/Not Resolved]
  - Blood pressure abnormal [Unknown]
